FAERS Safety Report 12596563 (Version 2)
Quarter: 2016Q3

REPORT INFORMATION
  Report Type: Spontaneous
  Country: US (occurrence: US)
  Receive Date: 20160726
  Receipt Date: 20160729
  Transmission Date: 20161109
  Serious: Yes (Hospitalization)
  Sender: FDA-Public Use
  Company Number: US-CELGENEUS-USA-2016031041

PATIENT
  Age: 76 Year
  Sex: Male

DRUGS (1)
  1. REVLIMID [Suspect]
     Active Substance: LENALIDOMIDE
     Indication: IMMUNE THROMBOCYTOPENIC PURPURA
     Dosage: 5 MILLIGRAM
     Route: 048
     Dates: start: 201512

REACTIONS (4)
  - Headache [Recovered/Resolved]
  - Constipation [Recovered/Resolved]
  - Pharyngeal haemorrhage [Recovered/Resolved]
  - Pyrexia [Unknown]

NARRATIVE: CASE EVENT DATE: 20160719
